FAERS Safety Report 21751260 (Version 2)
Quarter: 2022Q4

REPORT INFORMATION
  Report Type: Spontaneous
  Country: US (occurrence: US)
  Receive Date: 20221220
  Receipt Date: 20221220
  Transmission Date: 20230113
  Serious: No
  Sender: FDA-Public Use
  Company Number: US-CELLTRION INC.-2021US016350

PATIENT

DRUGS (2)
  1. TRUXIMA [Suspect]
     Active Substance: RITUXIMAB-ABBS
     Indication: Burkitt^s lymphoma
     Dosage: 375 MG/M2 = 900 MG Q 21 DAYS
     Route: 042
     Dates: start: 20211202
  2. TRUXIMA [Suspect]
     Active Substance: RITUXIMAB-ABBS
     Indication: Iron deficiency anaemia

REACTIONS (2)
  - Off label use [Unknown]
  - Off label use [Unknown]
